FAERS Safety Report 6406402-6 (Version None)
Quarter: 2009Q4

REPORT INFORMATION
  Report Type: 
  Country: None (occurrence: None)
  Receive Date: 20091014
  Receipt Date: 20091007
  Transmission Date: 20100525
  Serious: Yes (Hospitalization)
  Sender: FDA-Public Use
  Company Number: 2007SP014235

PATIENT
  Age: 55 Year
  Sex: Male
  Weight: 75 kg

DRUGS (2)
  1. PEG-INTRON [Suspect]
     Indication: HEPATITIS C
     Dosage: 100 MCG;QW;SC
     Route: 058
     Dates: start: 20060529, end: 20060630
  2. REBETOL [Suspect]
     Indication: CHRONIC HEPATITIS
     Dosage: 800 MG; PO
     Route: 048
     Dates: start: 20060529, end: 20060630

REACTIONS (2)
  - DIZZINESS [None]
  - HYPERTENSIVE ENCEPHALOPATHY [None]
